FAERS Safety Report 25812803 (Version 1)
Quarter: 2025Q3

REPORT INFORMATION
  Report Type: Spontaneous
  Country: US (occurrence: US)
  Receive Date: 20250917
  Receipt Date: 20250917
  Transmission Date: 20251021
  Serious: No
  Sender: SANOFI AVENTIS
  Company Number: US-SA-2025SA276928

PATIENT
  Sex: Female
  Weight: 62.73 kg

DRUGS (12)
  1. DUPIXENT [Suspect]
     Active Substance: DUPILUMAB
     Indication: Dermatitis atopic
     Dosage: 300 MG, QOW
     Route: 058
  2. PIROXICAM [Concomitant]
     Active Substance: PIROXICAM
  3. KEPPRA [Concomitant]
     Active Substance: LEVETIRACETAM
  4. MELOXICAM [Concomitant]
     Active Substance: MELOXICAM
  5. CYCLOBENZAPRINE HYDROCHLORIDE [Concomitant]
     Active Substance: CYCLOBENZAPRINE HYDROCHLORIDE
  6. OMEPRAZOLE [Concomitant]
     Active Substance: OMEPRAZOLE
  7. HYDROXYZINE HYDROCHLORIDE [Concomitant]
     Active Substance: HYDROXYZINE HYDROCHLORIDE
  8. ESTRADIOL [Concomitant]
     Active Substance: ESTRADIOL
     Dosage: QW
  9. PROGESTERONE [Concomitant]
     Active Substance: PROGESTERONE
  10. GABAPENTIN [Concomitant]
     Active Substance: GABAPENTIN
  11. BENZONATATE [Concomitant]
     Active Substance: BENZONATATE
  12. HYDROXYZINE HYDROCHLORIDE [Concomitant]
     Active Substance: HYDROXYZINE HYDROCHLORIDE

REACTIONS (1)
  - Dry skin [Not Recovered/Not Resolved]
